FAERS Safety Report 10221640 (Version 2)
Quarter: 2014Q3

REPORT INFORMATION
  Report Type: Spontaneous
  Country: KR (occurrence: KR)
  Receive Date: 20140606
  Receipt Date: 20140717
  Transmission Date: 20150326
  Serious: Yes (Other)
  Sender: FDA-Public Use
  Company Number: KR-PFIZER INC-2014151007

PATIENT
  Age: 71 Year
  Sex: Male

DRUGS (3)
  1. VIAGRA [Suspect]
     Active Substance: SILDENAFIL CITRATE
     Indication: ERECTILE DYSFUNCTION
     Dosage: 100 MG, ONCE PER 2 DAYS OR ONCE A MONTH
     Route: 048
  2. VIAGRA [Suspect]
     Active Substance: SILDENAFIL CITRATE
     Dosage: 300 MG (3 TABLETS A DAY), DAILY
     Route: 048
  3. VIAGRA [Suspect]
     Active Substance: SILDENAFIL CITRATE
     Dosage: 200 MG (2 TABLETS A DAY), DAILY
     Route: 048

REACTIONS (11)
  - Drug ineffective [Unknown]
  - Intentional product misuse [Unknown]
  - Lacrimation increased [Not Recovered/Not Resolved]
  - Xanthopsia [Unknown]
  - Eye discharge [Unknown]
  - Spinal disorder [Unknown]
  - Cataract [Unknown]
  - Eye pain [Unknown]
  - Optic nerve disorder [Unknown]
  - Vision blurred [Unknown]
  - Urethral disorder [Unknown]
